FAERS Safety Report 25828001 (Version 1)
Quarter: 2025Q3

REPORT INFORMATION
  Report Type: Spontaneous
  Country: US (occurrence: US)
  Receive Date: 20250921
  Receipt Date: 20250921
  Transmission Date: 20251021
  Serious: No
  Sender: SANOFI AVENTIS
  Company Number: US-SA-2025SA279978

PATIENT
  Age: 51 Year
  Sex: Female
  Weight: 159.09 kg

DRUGS (20)
  1. KEVZARA [Suspect]
     Active Substance: SARILUMAB
     Indication: Rheumatoid arthritis
     Dosage: 200 MG, QOW
     Route: 058
  2. BETAMETHASONE\CLOTRIMAZOLE [Concomitant]
     Active Substance: BETAMETHASONE\CLOTRIMAZOLE
  3. KETOCONAZOLE [Concomitant]
     Active Substance: KETOCONAZOLE
  4. DULOXETINE HYDROCHLORIDE [Concomitant]
     Active Substance: DULOXETINE HYDROCHLORIDE
  5. ONDANSETRON HYDROCHLORIDE [Concomitant]
     Active Substance: ONDANSETRON HYDROCHLORIDE
  6. LEFLUNOMIDE [Concomitant]
     Active Substance: LEFLUNOMIDE
  7. TYLENOL EXTRA STRENGTH [Concomitant]
     Active Substance: ACETAMINOPHEN
  8. XARELTO [Concomitant]
     Active Substance: RIVAROXABAN
  9. ALLEGRA-D 24 HOUR [Concomitant]
     Active Substance: FEXOFENADINE HYDROCHLORIDE\PSEUDOEPHEDRINE HYDROCHLORIDE
  10. MAGNESIUM [Concomitant]
     Active Substance: MAGNESIUM
  11. PROBIOTICS [PROBIOTICS NOS] [Concomitant]
  12. METHOCARBAMOL [Concomitant]
     Active Substance: METHOCARBAMOL
  13. GABAPENTIN [Concomitant]
     Active Substance: GABAPENTIN
  14. HYDROXYCHLOROQUINE SULFATE [Concomitant]
     Active Substance: HYDROXYCHLOROQUINE SULFATE
  15. ACETAMINOPHEN\HYDROCODONE [Concomitant]
     Active Substance: ACETAMINOPHEN\HYDROCODONE
  16. STOOL SOFTENER (DOCUSATE) [Concomitant]
     Active Substance: DOCUSATE
  17. CLOBETASOL [Concomitant]
     Active Substance: CLOBETASOL
  18. MUPIROCIN [Concomitant]
     Active Substance: MUPIROCIN
  19. SPIRONOLACTONE [Concomitant]
     Active Substance: SPIRONOLACTONE
  20. MODERNA COVID-19 VACCINE [Concomitant]
     Active Substance: ELASOMERAN

REACTIONS (5)
  - Nausea [Not Recovered/Not Resolved]
  - Illness [Not Recovered/Not Resolved]
  - Pain in extremity [Not Recovered/Not Resolved]
  - Therapeutic response decreased [Unknown]
  - Muscle spasms [Not Recovered/Not Resolved]

NARRATIVE: CASE EVENT DATE: 20250912
